FAERS Safety Report 16204491 (Version 1)
Quarter: 2019Q2

REPORT INFORMATION
  Report Type: Spontaneous
  Country: US (occurrence: US)
  Receive Date: 20190416
  Receipt Date: 20190416
  Transmission Date: 20190711
  Serious: Yes (Other)
  Sender: FDA-Public Use
  Company Number: US-PFIZER INC-2019153596

PATIENT
  Age: 45 Year
  Sex: Female
  Weight: 116.55 kg

DRUGS (4)
  1. TRAZODONE [Concomitant]
     Active Substance: TRAZODONE HYDROCHLORIDE
     Indication: SLEEP DISORDER
     Dosage: 50 MG, 1X/DAY (AT NIGHT)
     Route: 048
  2. GEODON [Suspect]
     Active Substance: ZIPRASIDONE HYDROCHLORIDE\ZIPRASIDONE MESYLATE
     Indication: AUTISM SPECTRUM DISORDER
     Dosage: UNK
     Dates: start: 2017, end: 201712
  3. ATIVAN [Concomitant]
     Active Substance: LORAZEPAM
     Dosage: UNK, 1X/DAY (AT NIGHT)
  4. GEODON [Suspect]
     Active Substance: ZIPRASIDONE HYDROCHLORIDE\ZIPRASIDONE MESYLATE
     Dosage: 40 MG, 2X/DAY
     Route: 048
     Dates: end: 20180101

REACTIONS (9)
  - Sleep disorder [Not Recovered/Not Resolved]
  - Tourette^s disorder [Unknown]
  - Abnormal dreams [Not Recovered/Not Resolved]
  - Abnormal behaviour [Not Recovered/Not Resolved]
  - Product use in unapproved indication [Not Recovered/Not Resolved]
  - Seizure [Not Recovered/Not Resolved]
  - Aggression [Not Recovered/Not Resolved]
  - Screaming [Not Recovered/Not Resolved]
  - Weight decreased [Unknown]

NARRATIVE: CASE EVENT DATE: 201709
